FAERS Safety Report 8186545-X (Version None)
Quarter: 2012Q1

REPORT INFORMATION
  Report Type: 
  Country: None (occurrence: None)
  Receive Date: 20120302
  Receipt Date: 20120302
  Transmission Date: 20120608
  Serious: No
  Sender: FDA-Public Use
  Company Number: None

PATIENT
  Age: 62 Year
  Sex: Male

DRUGS (8)
  1. EGRIFTA [Suspect]
     Indication: LIPODYSTROPHY ACQUIRED
     Dosage: 2MG DAILY SUBCUTANEOUSLY
     Route: 058
     Dates: start: 20120101, end: 20120201
  2. ACYCLOVIR [Concomitant]
  3. ANDROGEL [Concomitant]
  4. TRUVADA [Concomitant]
  5. LUNESTA [Concomitant]
  6. VIAGRA [Concomitant]
  7. INTELENCE [Concomitant]
  8. INSENTRESS [Concomitant]

REACTIONS (2)
  - DRUG INEFFECTIVE [None]
  - NEUROPATHY PERIPHERAL [None]
